FAERS Safety Report 7682417-5 (Version None)
Quarter: 2011Q3

REPORT INFORMATION
  Report Type: 
  Country: None (occurrence: None)
  Receive Date: 20110808
  Receipt Date: 20110801
  Transmission Date: 20111222
  Serious: Yes (Other)
  Sender: FDA-Public Use
  Company Number: 2010SP066164

PATIENT
  Age: 46 Year
  Sex: Male

DRUGS (2)
  1. PEGINTERFERON ALFA-2B [Suspect]
     Indication: HEPATITIS C
     Dosage: SC
     Route: 058
     Dates: start: 20070126
  2. REBETOL [Suspect]
     Indication: HEPATITIS C
     Dosage: 1600 MG, QD, PO
     Route: 048
     Dates: start: 20070126

REACTIONS (3)
  - PHOTOSENSITIVITY REACTION [None]
  - PORPHYRIA NON-ACUTE [None]
  - BLOOD IRON INCREASED [None]
